FAERS Safety Report 8428527-6 (Version None)
Quarter: 2012Q2

REPORT INFORMATION
  Report Type: 
  Country: None (occurrence: None)
  Receive Date: 20120606
  Receipt Date: 20120606
  Transmission Date: 20120825
  Serious: Yes (Hospitalization)
  Sender: FDA-Public Use
  Company Number: None

PATIENT
  Age: 27 Year
  Sex: Male

DRUGS (3)
  1. VENLAFAXINE [Suspect]
     Indication: POST-TRAUMATIC STRESS DISORDER
     Dosage: 75 MG AT BEDTIME, ONCE DAILY, PO
     Route: 048
     Dates: start: 20120423, end: 20120423
  2. VENLAFAXINE [Suspect]
     Indication: ATTENTION DEFICIT/HYPERACTIVITY DISORDER
     Dosage: 75 MG AT BEDTIME, ONCE DAILY, PO
     Route: 048
     Dates: start: 20120423, end: 20120423
  3. VENLAFAXINE [Suspect]
     Indication: ANXIETY
     Dosage: 75 MG AT BEDTIME, ONCE DAILY, PO
     Route: 048
     Dates: start: 20120423, end: 20120423

REACTIONS (2)
  - MUSCULOSKELETAL STIFFNESS [None]
  - DYSKINESIA [None]
